FAERS Safety Report 5368302-2 (Version None)
Quarter: 2007Q2

REPORT INFORMATION
  Report Type: 
  Country: None (occurrence: None)
  Receive Date: 20070620
  Receipt Date: 20070607
  Transmission Date: 20071010
  Serious: Yes (Other)
  Sender: FDA-Public Use
  Company Number: ESP07000058

PATIENT
  Age: 70 Year
  Sex: Female
  Weight: 80 kg

DRUGS (7)
  1. RISEDRONATE SODIUM [Suspect]
     Indication: OSTEOPOROSIS
     Dosage: 35 MG, 1/DAY, ORAL
     Route: 048
     Dates: start: 20070129, end: 20070326
  2. PLAVIX  /01220701/ (CLOPIDOGREL) TABLET, 75 MG [Suspect]
     Dosage: 75 MG, 1 DAY, ORAL
     Route: 048
  3. APOCARD (FLECAINIDE ACETATE) TABLET, 100 MG [Suspect]
     Dosage: 100 MG, 1/DAY, ORAL
     Route: 048
  4. CIMASCAL D FORTE (COLECALCIFEROL, CALCIUM CARBONATE) [Concomitant]
  5. FORTZAAR (LOSARTAN POTASSIUM, HYDROCHLOROTHIAZIDE) [Concomitant]
  6. BRISTACOL (PRAVASTATIN SODIUM) [Concomitant]
  7. DEANXIT (MELITRACEN HYDROCHLORIDE, FLUPENTIXOL DIHYDROCHLORIDE) [Concomitant]

REACTIONS (1)
  - HALLUCINATION [None]
